FAERS Safety Report 6588395-4 (Version None)
Quarter: 2010Q1

REPORT INFORMATION
  Report Type: 
  Country: None (occurrence: None)
  Receive Date: 20100218
  Receipt Date: 20091116
  Transmission Date: 20100710
  Serious: Yes (Other)
  Sender: FDA-Public Use
  Company Number: US-ALLERGAN-0911694US

PATIENT
  Age: 49 Year
  Sex: Female
  Weight: 145.58 kg

DRUGS (32)
  1. BOTOX [Suspect]
     Indication: MYOFASCIAL PAIN SYNDROME
     Dosage: 100 UNITS, SINGLE
     Route: 030
     Dates: start: 20090122, end: 20090122
  2. BOTOX [Suspect]
     Indication: TORTICOLLIS
     Dosage: 100 UNK, SINGLE
     Route: 030
     Dates: start: 20090423, end: 20090423
  3. BOTOX [Suspect]
     Dosage: 30 UNK, SINGLE
     Route: 030
     Dates: start: 20090423, end: 20090423
  4. BOTOX [Suspect]
     Dosage: 100 UNK, SINGLE
     Route: 030
     Dates: start: 20070927, end: 20070927
  5. BOTOX [Suspect]
     Dosage: 100 UNK, SINGLE
     Route: 030
     Dates: start: 20071226, end: 20071226
  6. BOTOX [Suspect]
     Dosage: 100 UNK, SINGLE
     Route: 030
     Dates: start: 20080327, end: 20080327
  7. BOTOX [Suspect]
     Dosage: 100 UNK, SINGLE
     Route: 030
     Dates: start: 20080626, end: 20080626
  8. BOTOX [Suspect]
     Dosage: 100 UNK, SINGLE
     Route: 030
     Dates: start: 20080925, end: 20080925
  9. BOTOX [Suspect]
     Dosage: 100 UNK, SINGLE
     Route: 030
     Dates: start: 20090723, end: 20090723
  10. BIOSOM CDHEA [Concomitant]
     Dosage: 1 SPRAY
     Dates: start: 20080925
  11. VITAMIN D [Concomitant]
     Dosage: 50000 UNITS, Q WEEK
     Dates: start: 20080814
  12. PROGESTERONE [Concomitant]
     Dosage: 1 ONCE EACH DAY
     Dates: start: 20080814
  13. NEURONTIN [Concomitant]
     Dosage: 800 MG, QHS
     Dates: start: 20080304
  14. NEURONTIN [Concomitant]
     Dosage: 600 MG, BID
     Dates: start: 20030101
  15. RHINOCORT [Concomitant]
     Dosage: 32 A?G, QHS
     Dates: start: 20070424
  16. PREVACID [Concomitant]
     Dosage: 30 MG, QAM
     Dates: start: 20070424
  17. OXYCODONE HCL [Concomitant]
     Dosage: 10 MG, BID
     Dates: start: 20070424
  18. MIRAPEX [Concomitant]
     Dosage: 1.5 MG, BID
     Dates: start: 20070424
  19. BUSPAR [Concomitant]
     Dosage: 15 MG, BID
     Dates: start: 20070424
  20. SKELAXIN [Concomitant]
     Dosage: 800 MG, AS DIR 1/2 IN AM 1/2 IN AFTERNOON, 1 FULL TAB IN PM
     Dates: start: 20030101
  21. PROVIGIL [Concomitant]
     Dosage: 200 MG, QD
     Dates: start: 20030101
  22. POTASSIUM CHLORIDE [Concomitant]
     Dosage: 20 MEQ, BID
     Dates: start: 20030101
  23. LORAZEPAM [Concomitant]
     Dosage: 0.5 MG, 1 EVERY 6 HOURS PRN
     Dates: start: 20030101
  24. IPRATROPIUM BROMIDE [Concomitant]
     Dosage: 2 SPRAYS
     Dates: start: 20030101
  25. GEMFIBROZIL [Concomitant]
     Dosage: 600 MG, BID
     Dates: start: 20030101
  26. FEXOFENADINE HCL [Concomitant]
     Dosage: 180 MG, QHS
     Dates: start: 20030101
  27. DIOVAN [Concomitant]
     Dosage: 160 MG, QAM
     Dates: start: 20030101
  28. CYCLOBENZAPRINE HCL [Concomitant]
     Dosage: 10 MG, QHS
     Dates: start: 20030101
  29. CHLORTHALIDONE [Concomitant]
     Dosage: 25 MG, BID
     Dates: start: 20030101
  30. PHRENILIN [Concomitant]
     Dosage: 50 MG, AS NEEDED PRN
     Dates: start: 20070425
  31. TRAMADOL HCL [Concomitant]
     Dosage: 50 MG, 2 EVERY 4 HOURS PRN
     Dates: start: 20070424
  32. HYDROCODONE BITARTRATE AND ACETAMINOPHEN [Concomitant]
     Dosage: 5/500 1 AS NEEDED PRN
     Dates: start: 20070424

REACTIONS (2)
  - DRUG INEFFECTIVE [None]
  - MUSCULAR WEAKNESS [None]
